FAERS Safety Report 6427300-8 (Version None)
Quarter: 2009Q4

REPORT INFORMATION
  Report Type: 
  Country: None (occurrence: None)
  Receive Date: 20091104
  Receipt Date: 20091029
  Transmission Date: 20100525
  Serious: Yes (Other)
  Sender: FDA-Public Use
  Company Number: B0601000A

PATIENT
  Age: 11 Year
  Sex: Female

DRUGS (4)
  1. RELENZA [Suspect]
     Indication: INFLUENZA
     Dosage: 10MG TWICE PER DAY
     Route: 055
     Dates: start: 20091025
  2. CHINESE MEDICINE [Concomitant]
     Route: 048
     Dates: start: 20091025
  3. MUCOSOLVAN [Concomitant]
     Route: 048
     Dates: start: 20091025
  4. ASVERIN [Concomitant]
     Dosage: 10MG THREE TIMES PER DAY
     Route: 048
     Dates: start: 20091025

REACTIONS (2)
  - DELIRIUM [None]
  - SLEEP TALKING [None]
